FAERS Safety Report 9147177 (Version 1)
Quarter: 2013Q1

REPORT INFORMATION
  Report Type: Spontaneous
  Country: GB (occurrence: None)
  Receive Date: 20130207
  Receipt Date: 20130207
  Transmission Date: 20140127
  Serious: Yes (Death)
  Sender: FDA-Public Use
  Company Number: GB-MACLEODS PHARMA-000061

PATIENT
  Age: 72 Year
  Sex: Female
  Weight: 55 kg

DRUGS (6)
  1. DONEPEZIL (DONEPEZIL) [Suspect]
     Indication: PRODUCT USED FOR UNKNOWN INDICATION
  2. ENOXAPARIN (ENOXAPARIN) [Concomitant]
  3. PARACETAMOL (PARACETAMOL) [Concomitant]
  4. ADCAL-D3 (ADCAL-D3) [Concomitant]
  5. MAGNESIUM HYDROXIDE (MAGNESIUM HYDROXIDE) [Concomitant]
  6. SENNA [Suspect]

REACTIONS (1)
  - Gastrointestinal haemorrhage [None]
